FAERS Safety Report 15341367 (Version 4)
Quarter: 2020Q3

REPORT INFORMATION
  Report Type: Spontaneous
  Country: US (occurrence: US)
  Receive Date: 20180831
  Receipt Date: 20200717
  Transmission Date: 20201102
  Serious: Yes (Hospitalization, Other)
  Sender: FDA-Public Use
  Company Number: US-ALEXION PHARMACEUTICALS INC.-A201810890

PATIENT
  Sex: Female
  Weight: 19.7 kg

DRUGS (10)
  1. KANUMA [Suspect]
     Active Substance: SEBELIPASE ALFA
     Dosage: 5 MG/KG, UNK
     Route: 065
     Dates: start: 20180313
  2. KANUMA [Suspect]
     Active Substance: SEBELIPASE ALFA
     Dosage: 3 MG/KG, UNK
     Route: 065
     Dates: start: 20150710
  3. ISRADIPINE. [Concomitant]
     Active Substance: ISRADIPINE
     Indication: BLOOD PRESSURE SYSTOLIC INCREASED
     Dosage: 1.2 MG, PRN
     Route: 048
  4. ENOXAPARIN [Concomitant]
     Active Substance: ENOXAPARIN
     Indication: PRODUCT USED FOR UNKNOWN INDICATION
     Dosage: 12 IU, Q12H
     Route: 058
  5. KANUMA [Suspect]
     Active Substance: SEBELIPASE ALFA
     Indication: LYSOSOMAL ACID LIPASE DEFICIENCY
     Dosage: 1 MG/KG, UNK
     Route: 065
     Dates: start: 20150604, end: 20150707
  6. KANUMA [Suspect]
     Active Substance: SEBELIPASE ALFA
     Dosage: 31.75 ML, QW
     Route: 042
  7. ALBUTEROL                          /00139501/ [Concomitant]
     Active Substance: ALBUTEROL
     Indication: DYSPNOEA
     Dosage: 3 ML, PRN
     Route: 055
  8. EPINEPHRINE. [Concomitant]
     Active Substance: EPINEPHRINE
     Indication: RESPIRATORY DISTRESS
     Dosage: 0.12 MG, PRN
     Route: 030
  9. ACETAMINOPHEN. [Concomitant]
     Active Substance: ACETAMINOPHEN
     Indication: PREMEDICATION
     Dosage: 5.3 ML, QW
     Route: 048
  10. FAT EMULSION NOS [Concomitant]
     Active Substance: EGG PHOSPHOLIPIDS\SAFFLOWER OIL\SOYBEAN OIL
     Indication: PRODUCT USED FOR UNKNOWN INDICATION
     Dosage: 95 ML, Q24H
     Route: 042

REACTIONS (30)
  - Malnutrition [Unknown]
  - Lice infestation [Recovered/Resolved]
  - Adrenal calcification [Unknown]
  - Hepatosplenomegaly [Unknown]
  - Osteopenia [Unknown]
  - Skull fracture [Unknown]
  - Iron deficiency anaemia [Recovering/Resolving]
  - Abdominal distension [Unknown]
  - Drug specific antibody present [Unknown]
  - Lethargy [Unknown]
  - Hypoalbuminaemia [Unknown]
  - Hepatic fibrosis [Unknown]
  - Hypotonia [Unknown]
  - Urticaria [Unknown]
  - Hypokalaemia [Unknown]
  - Failure to thrive [Unknown]
  - Speech disorder developmental [Unknown]
  - Developmental delay [Unknown]
  - Infusion related reaction [Unknown]
  - Bacteraemia [Unknown]
  - Hypoglycaemia [Recovered/Resolved]
  - Abdominal lymphadenopathy [Unknown]
  - Drug ineffective [Unknown]
  - Atrial thrombosis [Recovering/Resolving]
  - Adrenal insufficiency [Unknown]
  - Haemolysis [Unknown]
  - Fall [Unknown]
  - Condition aggravated [Unknown]
  - Anaemia of chronic disease [Unknown]
  - Gastrooesophageal reflux disease [Unknown]

NARRATIVE: CASE EVENT DATE: 20150608
